FAERS Safety Report 17886941 (Version 1)
Quarter: 2020Q2

REPORT INFORMATION
  Report Type: Report from Study
  Country: US (occurrence: US)
  Receive Date: 20200611
  Receipt Date: 20200611
  Transmission Date: 20200714
  Serious: Yes (Death, Other)
  Sender: FDA-Public Use
  Company Number: US-MYLANLABS-2020M1056277

PATIENT
  Age: 35 Year
  Sex: Female

DRUGS (29)
  1. BUTRANS [Concomitant]
     Active Substance: BUPRENORPHINE
     Dosage: UNK
  2. PERCOCET [Concomitant]
     Active Substance: ACETAMINOPHEN\OXYCODONE HYDROCHLORIDE
     Dosage: UNK
  3. OPANA [Concomitant]
     Active Substance: OXYMORPHONE HYDROCHLORIDE
     Dosage: 10-20MG, Q8H
  4. DECADRON [Concomitant]
     Active Substance: DEXAMETHASONE
     Dosage: UNK
  5. SUBSYS [Suspect]
     Active Substance: FENTANYL
     Indication: COMPLEX REGIONAL PAIN SYNDROME
  6. XANAX [Suspect]
     Active Substance: ALPRAZOLAM
     Indication: PRODUCT USED FOR UNKNOWN INDICATION
     Dosage: UNK
     Route: 065
  7. BELSOMRA [Concomitant]
     Active Substance: SUVOREXANT
     Dosage: 20 MILLIGRAM, QD, BEDTIME
  8. CARISOPRODOL. [Suspect]
     Active Substance: CARISOPRODOL
     Indication: PRODUCT USED FOR UNKNOWN INDICATION
     Dosage: UNK
     Route: 048
  9. SUBSYS [Suspect]
     Active Substance: FENTANYL
     Indication: PAIN
  10. WELLBUTRIN [Concomitant]
     Active Substance: BUPROPION HYDROCHLORIDE
     Dosage: UNK
  11. ATIVAN [Concomitant]
     Active Substance: LORAZEPAM
     Dosage: 1 MILLIGRAM, MONTHLY OR EVERY OTHER MONTH
     Route: 030
  12. METHADONE [Concomitant]
     Active Substance: METHADONE HYDROCHLORIDE
     Dosage: UNK
     Dates: start: 2014, end: 2015
  13. VALIUM [Concomitant]
     Active Substance: DIAZEPAM
     Dosage: UNK
  14. TORADOL [Concomitant]
     Active Substance: KETOROLAC TROMETHAMINE
     Dosage: 60 MILLIGRAM, MONTHLY OR EVERY OTHER MONTH
     Route: 030
  15. SUBSYS [Suspect]
     Active Substance: FENTANYL
     Indication: PAIN
  16. SUBSYS [Suspect]
     Active Substance: FENTANYL
     Indication: FIBROMYALGIA
     Dosage: 400 ?G, 6X/DAY
     Route: 060
     Dates: start: 20180418, end: 20180430
  17. DILAUDID [Concomitant]
     Active Substance: HYDROMORPHONE HYDROCHLORIDE
     Dosage: 4 TO 8 MG, Q4H
     Route: 048
     Dates: start: 20180504
  18. SUBSYS [Suspect]
     Active Substance: FENTANYL
     Indication: COMPLEX REGIONAL PAIN SYNDROME
  19. SUBSYS [Suspect]
     Active Substance: FENTANYL
     Indication: COMPLEX REGIONAL PAIN SYNDROME
  20. OXYMORPHONE [Concomitant]
     Active Substance: OXYMORPHONE
     Dosage: UNK
  21. LEVORPHANOL [Concomitant]
     Active Substance: LEVORPHANOL
     Dosage: UNK
  22. SUBSYS [Suspect]
     Active Substance: FENTANYL
     Indication: FIBROMYALGIA
     Dosage: UNK
     Route: 060
     Dates: start: 2014
  23. SUBSYS [Suspect]
     Active Substance: FENTANYL
     Indication: FIBROMYALGIA
     Dosage: 600 ?G, 6X/DAY (600 MCG SUBLINGUALLY, EVERY 4 HOURS AS NEEDED)
     Route: 060
     Dates: start: 20180508, end: 20180926
  24. SUBSYS [Suspect]
     Active Substance: FENTANYL
     Indication: PAIN
  25. ADDERALL [Concomitant]
     Active Substance: AMPHETAMINE ASPARTATE\AMPHETAMINE SULFATE\DEXTROAMPHETAMINE SACCHARATE\DEXTROAMPHETAMINE SULFATE
     Dosage: UNK
     Dates: start: 2014, end: 2015
  26. DECADRON [Concomitant]
     Active Substance: DEXAMETHASONE
     Dosage: BETWEEN 15 AND 25 MG, MONTHLY
     Route: 030
     Dates: start: 20180504, end: 20180504
  27. OPANA [Concomitant]
     Active Substance: OXYMORPHONE HYDROCHLORIDE
     Dosage: 10 MILLIGRAM
  28. DECADRON [Concomitant]
     Active Substance: DEXAMETHASONE
     Dosage: BETWEEN 15 AND 25 MG, MONTHLY
     Route: 030
     Dates: start: 20180828, end: 20180828
  29. MEDROL [Concomitant]
     Active Substance: METHYLPREDNISOLONE
     Dosage: UNK

REACTIONS (15)
  - Pelvic deformity [Unknown]
  - Drug ineffective for unapproved indication [Unknown]
  - Swelling face [Recovering/Resolving]
  - Headache [Unknown]
  - Pallor [Unknown]
  - Weight decreased [Unknown]
  - Photophobia [Not Recovered/Not Resolved]
  - Paraesthesia [Unknown]
  - Fatigue [Unknown]
  - Overdose [Fatal]
  - Cachexia [Unknown]
  - Suicidal ideation [Not Recovered/Not Resolved]
  - Blood immunoglobulin M decreased [Not Recovered/Not Resolved]
  - Nausea [Unknown]
  - Interleukin level increased [Unknown]

NARRATIVE: CASE EVENT DATE: 2017
